FAERS Safety Report 25032069 (Version 2)
Quarter: 2025Q1

REPORT INFORMATION
  Report Type: Spontaneous
  Country: US (occurrence: US)
  Receive Date: 20250303
  Receipt Date: 20250320
  Transmission Date: 20250409
  Serious: Yes (Hospitalization)
  Sender: ROCHE
  Company Number: US-ROCHE-10000221007

PATIENT
  Age: 19 Year
  Sex: Male

DRUGS (3)
  1. HEMLIBRA [Suspect]
     Active Substance: EMICIZUMAB-KXWH
     Indication: Factor VIII deficiency
     Dosage: FORM STRENGTH: 105MG/0.7ML?FORM STRENGTH: 60MG/0.4ML
     Route: 058
     Dates: start: 201207
  2. HEMLIBRA [Suspect]
     Active Substance: EMICIZUMAB-KXWH
     Dosage: FORM STRENGTH: 105MG/0.7ML?FORM STRENGTH: 60MG/0.4ML
     Route: 058
     Dates: start: 201207
  3. HEMLIBRA [Suspect]
     Active Substance: EMICIZUMAB-KXWH
     Dosage: FORM STRENGTH: 105MG/0.7ML?FORM STRENGTH: 60MG/0.4ML
     Route: 058
     Dates: start: 201207

REACTIONS (1)
  - Haemorrhage [Unknown]

NARRATIVE: CASE EVENT DATE: 20250218
